FAERS Safety Report 4561140-X (Version None)
Quarter: 2005Q1

REPORT INFORMATION
  Report Type: 
  Country: None (occurrence: None)
  Receive Date: 20050124
  Receipt Date: 20050110
  Transmission Date: 20050727
  Serious: Yes (Life-Threatening, Other)
  Sender: FDA-Public Use
  Company Number: 2005010387

PATIENT
  Age: 64 Year
  Sex: Male

DRUGS (1)
  1. CELEBREX [Suspect]
     Indication: TENDONITIS
     Dosage: ORAL
     Route: 048
     Dates: start: 20041201, end: 20041201

REACTIONS (2)
  - ANGIONEUROTIC OEDEMA [None]
  - BLOOD PRESSURE DECREASED [None]
